FAERS Safety Report 14228310 (Version 5)
Quarter: 2018Q1

REPORT INFORMATION
  Report Type: Report from Study
  Country: None (occurrence: BE)
  Receive Date: 20171127
  Receipt Date: 20180108
  Transmission Date: 20180508
  Serious: Yes (Other)
  Sender: FDA-Public Use
  Company Number: BE-ABBVIE-17K-013-2168019-00

PATIENT
  Age: 79 Year
  Sex: Male

DRUGS (11)
  1. STALEVO [Concomitant]
     Active Substance: CARBIDOPA\ENTACAPONE\LEVODOPA
     Indication: PRODUCT USED FOR UNKNOWN INDICATION
     Dosage: AS RESCUE MEDICATION
  2. PROLOPA HBS [Concomitant]
     Active Substance: BENSERAZIDE\LEVODOPA
     Dosage: 1.5 HOURS AFTER TURNING DOWN DUODOPA PUMP
  3. DUODOPA [Suspect]
     Active Substance: CARBIDOPA\LEVODOPA
     Dosage: MD: 11 ML??CD: 3 ML/HR DURING 16 HRS??ED: 1.5 ML
     Route: 050
     Dates: start: 20171116, end: 20171117
  4. CRESTOR [Concomitant]
     Active Substance: ROSUVASTATIN CALCIUM
     Indication: PRODUCT USED FOR UNKNOWN INDICATION
  5. METFORMAX [Concomitant]
     Active Substance: METFORMIN HYDROCHLORIDE
     Indication: PRODUCT USED FOR UNKNOWN INDICATION
  6. DUODOPA [Suspect]
     Active Substance: CARBIDOPA\LEVODOPA
     Indication: PARKINSON^S DISEASE
     Dosage: MD: 8 ML?CD: 3.3 ML/HR DURING 16 HRS?ED: 1.5 ML
     Route: 050
     Dates: start: 20171113, end: 20171116
  7. DUODOPA [Suspect]
     Active Substance: CARBIDOPA\LEVODOPA
     Dosage: MD: 8 ML??CD: 3.1 ML/HR DURING 16 HRS??ED: 1.5 ML
     Route: 050
     Dates: start: 20171117
  8. SELECTOL [Concomitant]
     Active Substance: CELIPROLOL
     Indication: PRODUCT USED FOR UNKNOWN INDICATION
  9. ALLOPURINOL. [Concomitant]
     Active Substance: ALLOPURINOL
     Indication: PRODUCT USED FOR UNKNOWN INDICATION
  10. PROLOPA HBS [Concomitant]
     Active Substance: BENSERAZIDE\LEVODOPA
     Indication: PARKINSON^S DISEASE
     Dosage: FORM STRENGTH: 100MG/25MG
     Route: 048
  11. ASAFLOW [Concomitant]
     Active Substance: ASPIRIN
     Indication: PRODUCT USED FOR UNKNOWN INDICATION

REACTIONS (8)
  - Muscle spasms [Unknown]
  - Stoma site infection [Recovered/Resolved]
  - Stoma site inflammation [Recovering/Resolving]
  - Stoma site discharge [Recovered/Resolved]
  - Stoma site erythema [Recovering/Resolving]
  - Dyskinesia [Not Recovered/Not Resolved]
  - Procedural pain [Unknown]
  - Stoma site pain [Recovered/Resolved]

NARRATIVE: CASE EVENT DATE: 2017
